FAERS Safety Report 4966288-3 (Version None)
Quarter: 2006Q2

REPORT INFORMATION
  Report Type: 
  Country: None (occurrence: None)
  Receive Date: 20060407
  Receipt Date: 20050414
  Transmission Date: 20061013
  Serious: Yes (Other)
  Sender: FDA-Public Use
  Company Number: US-MERCK-0504USA02874

PATIENT
  Age: 49 Year
  Sex: Female
  Weight: 159 kg

DRUGS (1)
  1. VIOXX [Suspect]
     Route: 048

REACTIONS (13)
  - BACK INJURY [None]
  - BONE DISORDER [None]
  - CARDIAC DISORDER [None]
  - CEREBROVASCULAR ACCIDENT [None]
  - DIABETES MELLITUS [None]
  - DIZZINESS [None]
  - DYSPNOEA [None]
  - EYE DISORDER [None]
  - FATIGUE [None]
  - GASTRIC DISORDER [None]
  - HYPERTENSION [None]
  - HYPOAESTHESIA [None]
  - LIMB INJURY [None]
